FAERS Safety Report 4825804-2 (Version None)
Quarter: 2005Q4

REPORT INFORMATION
  Report Type: 
  Country: None (occurrence: None)
  Receive Date: 20051111
  Receipt Date: 20051107
  Transmission Date: 20060501
  Serious: Yes (Other)
  Sender: FDA-Public Use
  Company Number: GB-GLAXOSMITHKLINE-B0399893A

PATIENT
  Age: 29 Year
  Sex: Male

DRUGS (3)
  1. KIVEXA [Suspect]
     Indication: HIV INFECTION
     Route: 048
     Dates: start: 20050922, end: 20051002
  2. SUSTIVA [Concomitant]
     Indication: HIV INFECTION
     Dosage: 600MG PER DAY
     Route: 048
     Dates: start: 20050922, end: 20051002
  3. AZITHROMYCIN [Concomitant]
     Indication: ANTIBIOTIC PROPHYLAXIS
     Dosage: 500MG PER DAY
     Route: 048
     Dates: start: 20050907

REACTIONS (3)
  - PYREXIA [None]
  - RASH GENERALISED [None]
  - RHINITIS [None]
